FAERS Safety Report 11675816 (Version 1)
Quarter: 2015Q4

REPORT INFORMATION
  Report Type: Spontaneous
  Country: US (occurrence: US)
  Receive Date: 20151027
  Receipt Date: 20151027
  Transmission Date: 20160304
  Serious: No
  Sender: FDA-Public Use
  Company Number: US-ELI_LILLY_AND_COMPANY-US201009003349

PATIENT
  Sex: Female

DRUGS (19)
  1. FLONASE [Concomitant]
     Active Substance: FLUTICASONE PROPIONATE
  2. VOSOL [Concomitant]
     Active Substance: ACETIC ACID
  3. OCUVITE [Concomitant]
     Active Substance: VITAMINS
  4. OMEGA 3 [Concomitant]
     Active Substance: OMEGA-3 FATTY ACIDS
  5. AMLODIPINE [Concomitant]
     Active Substance: AMLODIPINE BESYLATE
  6. XANAX [Concomitant]
     Active Substance: ALPRAZOLAM
  7. GELATIN [Concomitant]
     Active Substance: GELATIN
  8. ALLEGRA [Concomitant]
     Active Substance: FEXOFENADINE HYDROCHLORIDE
     Dosage: UNK, AS NEEDED
  9. MIACALCIN [Concomitant]
     Active Substance: CALCITONIN SALMON
  10. ASPIRIN. [Concomitant]
     Active Substance: ASPIRIN
     Dosage: 81 MG, DAILY (1/D)
  11. SYNTHROID [Concomitant]
     Active Substance: LEVOTHYROXINE SODIUM
  12. CITRICAL [Concomitant]
     Active Substance: CALCIUM CITRATE
  13. AMITIZA [Concomitant]
     Active Substance: LUBIPROSTONE
  14. XALATAN [Concomitant]
     Active Substance: LATANOPROST
  15. VITAMIN D [Concomitant]
     Active Substance: CHOLECALCIFEROL
  16. ALLERGAN PROTEIN [Concomitant]
  17. OXYGEN. [Concomitant]
     Active Substance: OXYGEN
  18. FORTEO [Suspect]
     Active Substance: TERIPARATIDE
     Dosage: UNK, UNKNOWN
     Route: 065
  19. SANNAX [Concomitant]

REACTIONS (2)
  - Pain [Unknown]
  - Injection site pain [Unknown]
